FAERS Safety Report 5023044-8 (Version None)
Quarter: 2006Q2

REPORT INFORMATION
  Report Type: 
  Country: None (occurrence: None)
  Receive Date: 20060426
  Receipt Date: 20060329
  Transmission Date: 20061013
  Serious: Yes (Other)
  Sender: FDA-Public Use
  Company Number: 2006046322

PATIENT
  Age: 50 Year
  Sex: Female

DRUGS (5)
  1. LYRICA [Suspect]
     Indication: PAIN
     Dosage: 100 MG (50 MG,2 IN 1 D),ORAL
     Route: 048
  2. PERCOCET [Concomitant]
  3. DILAUDID [Concomitant]
  4. HALCION [Concomitant]
  5. NEXIUM [Concomitant]

REACTIONS (1)
  - RASH [None]
